FAERS Safety Report 9506132 (Version 1)
Quarter: 2013Q1

REPORT INFORMATION
  Report Type: Spontaneous
  Country: US (occurrence: None)
  Receive Date: 20130301
  Receipt Date: 20130301
  Transmission Date: 20140127
  Serious: Yes (Other)
  Sender: FDA-Public Use
  Company Number: PHEH2012US009981

PATIENT
  Age: 64 Year
  Sex: Female

DRUGS (1)
  1. TEGRETOL (CARBAMAZEPINE) UNKNOWN [Suspect]

REACTIONS (3)
  - Hallucination [None]
  - Confusional state [None]
  - Sunburn [None]
